FAERS Safety Report 18642565 (Version 1)
Quarter: 2020Q4

REPORT INFORMATION
  Report Type: Spontaneous
  Country: BE (occurrence: BE)
  Receive Date: 20201221
  Receipt Date: 20201221
  Transmission Date: 20210114
  Serious: Yes (Death)
  Sender: FDA-Public Use
  Company Number: BE-PFIZER INC-2020410514

PATIENT

DRUGS (1)
  1. TORISEL [Suspect]
     Active Substance: TEMSIROLIMUS
     Indication: RENAL HAMARTOMA
     Dosage: 25 MG, WEEKLY
     Route: 042

REACTIONS (3)
  - Off label use [Unknown]
  - COVID-19 [Fatal]
  - Product use in unapproved indication [Unknown]
